FAERS Safety Report 11357175 (Version 1)
Quarter: 2015Q3

REPORT INFORMATION
  Report Type: Spontaneous
  Country: US (occurrence: US)
  Receive Date: 20150803
  Receipt Date: 20150803
  Transmission Date: 20151125
  Serious: No
  Sender: FDA-Public Use
  Company Number: US-ELI_LILLY_AND_COMPANY-US201310003609

PATIENT
  Sex: Male

DRUGS (4)
  1. CYMBALTA [Concomitant]
     Active Substance: DULOXETINE HYDROCHLORIDE
     Indication: PRODUCT USED FOR UNKNOWN INDICATION
     Dosage: 1 DF, UNKNOWN
     Route: 065
  2. NARDIL [Interacting]
     Active Substance: PHENELZINE SULFATE
     Indication: PRODUCT USED FOR UNKNOWN INDICATION
     Dosage: 1 DF, UNKNOWN
     Route: 065
  3. ZYPREXA [Interacting]
     Active Substance: OLANZAPINE
     Dosage: 1 DF, QD
     Route: 048
  4. ZYPREXA [Suspect]
     Active Substance: OLANZAPINE
     Indication: ANXIETY
     Dosage: 2.5 MG, QD
     Route: 048

REACTIONS (12)
  - Depression [Unknown]
  - Blood cholesterol increased [Unknown]
  - Weight increased [Unknown]
  - Cerebral disorder [Unknown]
  - Anxiety [Unknown]
  - Glucose tolerance impaired [Unknown]
  - Speech disorder [Unknown]
  - Wrong technique in product usage process [Unknown]
  - Drug withdrawal syndrome [Unknown]
  - Dependence [Unknown]
  - Off label use [Unknown]
  - Drug interaction [Unknown]
